FAERS Safety Report 7624554-7 (Version None)
Quarter: 2011Q3

REPORT INFORMATION
  Report Type: 
  Country: None (occurrence: None)
  Receive Date: 20110712
  Receipt Date: 20110706
  Transmission Date: 20111222
  Serious: Yes (Life-Threatening, Hospitalization, Disabling, Other)
  Sender: FDA-Public Use
  Company Number: 2011SP031504

PATIENT

DRUGS (2)
  1. LASIX [Concomitant]
  2. INTEGRILIN [Suspect]
     Indication: PRODUCT USED FOR UNKNOWN INDICATION
     Dates: start: 20110101

REACTIONS (1)
  - ACUTE RESPIRATORY DISTRESS SYNDROME [None]
